FAERS Safety Report 7132059-5 (Version None)
Quarter: 2010Q4

REPORT INFORMATION
  Report Type: 
  Country: None (occurrence: None)
  Receive Date: 20101202
  Receipt Date: 20101118
  Transmission Date: 20110411
  Serious: Yes (Hospitalization, Other)
  Sender: FDA-Public Use
  Company Number: PHFR2007GB01803

PATIENT
  Sex: Male

DRUGS (7)
  1. CLOZARIL [Suspect]
     Indication: SCHIZOPHRENIA
     Dosage: 100MG AM / 500MG PM
     Route: 048
     Dates: start: 20000516
  2. CLOZARIL [Suspect]
     Dosage: 500 MG/DAY
     Route: 048
  3. CLOZARIL [Suspect]
     Dosage: 200 MG DAILY
     Route: 048
  4. VALPROATE SODIUM [Concomitant]
     Dosage: UNK
  5. FLUOXETINE [Concomitant]
     Indication: DEPRESSED MOOD
     Dosage: 20 MG DAILY
     Route: 048
  6. PROCYCLIDINE HYDROCHLORIDE 2MG TAB [Concomitant]
     Dosage: 5 MG DAILY
     Route: 048
  7. HYOSCINE HBR HYT [Concomitant]

REACTIONS (7)
  - ANTIPSYCHOTIC DRUG LEVEL INCREASED [None]
  - DRUG TOXICITY [None]
  - FALL [None]
  - GRAND MAL CONVULSION [None]
  - HEAD INJURY [None]
  - MALAISE [None]
  - SALIVARY HYPERSECRETION [None]
